FAERS Safety Report 7215254-6 (Version None)
Quarter: 2011Q1

REPORT INFORMATION
  Report Type: 
  Country: None (occurrence: None)
  Receive Date: 20110107
  Receipt Date: 20101229
  Transmission Date: 20110831
  Serious: Yes (Hospitalization, Disabling, Other)
  Sender: FDA-Public Use
  Company Number: PHHY2010GB06959

PATIENT
  Age: 34 Year
  Sex: Female

DRUGS (16)
  1. VOLTAREN [Suspect]
     Dosage: 50 MG, TID
     Dates: start: 20080620
  2. LANSOPRAZOLE [Concomitant]
     Dosage: 30 MG, QD
     Route: 048
  3. DICLOFENAC POTASSIUM [Suspect]
     Indication: DYSMENORRHOEA
     Dosage: 50 MG, TID
     Dates: start: 20090123, end: 20090515
  4. DICLOFLEX [Suspect]
     Dosage: 50 MG, TID
     Route: 048
  5. ACETAMINOPHEN [Concomitant]
     Indication: DYSMENORRHOEA
     Dosage: UNK
     Dates: start: 20070101, end: 20080501
  6. SERETIDE EVOHALER [Concomitant]
     Indication: ASTHMA
     Dosage: 250 UG, BID
     Dates: start: 20080101
  7. SENNA [Concomitant]
     Dosage: UNK
     Dates: start: 20090123
  8. VENTOLIN [Concomitant]
     Indication: ASTHMA
     Dosage: 100 UG, PRN
  9. CEPHALEXIN [Concomitant]
     Dosage: 250 MG, BID
  10. TRAMADOL [Concomitant]
     Dosage: 50MG
     Route: 048
     Dates: start: 20090123
  11. ACETYLSALICYLIC ACID [Concomitant]
     Dosage: UNK
     Dates: start: 20090516, end: 20090517
  12. FRUSEMIDE [Concomitant]
     Dosage: UNK
     Dates: end: 20090524
  13. MULTI-VITAMINS [Concomitant]
     Indication: VITAMIN SUPPLEMENTATION
     Dosage: QD
     Dates: start: 19970101
  14. ACETAMINOPHEN [Concomitant]
     Dosage: 500 MG, PRN
  15. LACTULOSE [Concomitant]
     Dosage: UNK
     Dates: start: 20090123
  16. CEPHALEXIN [Concomitant]
     Dosage: 500 MG NOCTE

REACTIONS (49)
  - SEPSIS [None]
  - OCULAR HYPERAEMIA [None]
  - EYE PAIN [None]
  - DEPRESSION [None]
  - STRESS [None]
  - FEELING HOT [None]
  - VASCULITIC RASH [None]
  - PANIC ATTACK [None]
  - RENAL TUBULAR NECROSIS [None]
  - DEHYDRATION [None]
  - URINARY TRACT INFECTION [None]
  - PYREXIA [None]
  - RASH PRURITIC [None]
  - ABASIA [None]
  - WHEEZING [None]
  - DIARRHOEA [None]
  - CONJUNCTIVITIS [None]
  - HYPOAESTHESIA [None]
  - LACRIMATION INCREASED [None]
  - MUSCLE ATROPHY [None]
  - JOINT SWELLING [None]
  - EPISCLERITIS [None]
  - PALPITATIONS [None]
  - HAEMOPTYSIS [None]
  - FOREIGN BODY SENSATION IN EYES [None]
  - HEAT RASH [None]
  - WEIGHT DECREASED [None]
  - VISUAL IMPAIRMENT [None]
  - PHOTOPHOBIA [None]
  - SWELLING FACE [None]
  - WEIGHT BEARING DIFFICULTY [None]
  - PARAESTHESIA [None]
  - MUSCLE INJURY [None]
  - ARTHRALGIA [None]
  - VISION BLURRED [None]
  - GLOMERULONEPHRITIS MINIMAL LESION [None]
  - CHILLS [None]
  - OEDEMA PERIPHERAL [None]
  - RENAL FAILURE ACUTE [None]
  - CHEST PAIN [None]
  - AMENORRHOEA [None]
  - ERYTHEMA [None]
  - SKIN HYPERPIGMENTATION [None]
  - DYSPNOEA [None]
  - THALASSAEMIA ALPHA [None]
  - DYSURIA [None]
  - SUPRAPUBIC PAIN [None]
  - PAIN IN EXTREMITY [None]
  - MALAISE [None]
